FAERS Safety Report 9612127 (Version 2)
Quarter: 2013Q4

REPORT INFORMATION
  Report Type: Report from Study
  Country: DE (occurrence: DE)
  Receive Date: 20131010
  Receipt Date: 20131017
  Transmission Date: 20140711
  Serious: Yes (Hospitalization)
  Sender: FDA-Public Use
  Company Number: DE-SA-2013SA098963

PATIENT
  Age: 65 Year
  Sex: Male

DRUGS (8)
  1. DOCETAXEL [Suspect]
     Indication: GASTROOESOPHAGEAL CANCER
     Route: 042
     Dates: start: 20130801, end: 20130801
  2. OXALIPLATIN [Suspect]
     Indication: GASTROOESOPHAGEAL CANCER
     Route: 042
     Dates: start: 20130801, end: 20130801
  3. 5-FU [Suspect]
     Indication: GASTROOESOPHAGEAL CANCER
     Route: 065
     Dates: start: 20130801, end: 20130801
  4. FOLINIC ACID [Suspect]
     Indication: GASTROOESOPHAGEAL CANCER
     Route: 065
     Dates: start: 20130801, end: 20130801
  5. ALLOPURINOL [Concomitant]
  6. L-THYROXINE [Concomitant]
  7. PANTOZOL [Concomitant]
  8. BACLOFEN [Concomitant]

REACTIONS (7)
  - Asthenia [Recovered/Resolved]
  - General physical health deterioration [Recovered/Resolved]
  - Decreased appetite [Recovered/Resolved]
  - C-reactive protein increased [Recovered/Resolved]
  - Pyrexia [Recovered/Resolved]
  - Chills [Recovered/Resolved]
  - Urinary tract infection [Recovered/Resolved]
